FAERS Safety Report 9246880 (Version 1)
Quarter: 2013Q2

REPORT INFORMATION
  Report Type: Report from Study
  Country: US (occurrence: US)
  Receive Date: 20130422
  Receipt Date: 20130422
  Transmission Date: 20140414
  Serious: No
  Sender: FDA-Public Use
  Company Number: US-ABBOTT-12P-163-1009086-00

PATIENT
  Age: 11 Year
  Sex: Female
  Weight: 61.29 kg

DRUGS (2)
  1. LUPRON DEPOT-PED [Suspect]
     Indication: PRECOCIOUS PUBERTY
     Route: 030
     Dates: end: 201202
  2. QVAR [Concomitant]
     Indication: ASTHMA
     Dosage: INHALER

REACTIONS (1)
  - Weight increased [Not Recovered/Not Resolved]
